FAERS Safety Report 8493853-1 (Version None)
Quarter: 2012Q3

REPORT INFORMATION
  Report Type: 
  Country: None (occurrence: None)
  Receive Date: 20120706
  Receipt Date: 20120626
  Transmission Date: 20120928
  Serious: Yes (Death, Other)
  Sender: FDA-Public Use
  Company Number: IT-GILEAD-2012-0055408

PATIENT
  Sex: Female

DRUGS (11)
  1. ZEBETA [Concomitant]
  2. AZATIOPRINA                        /00001501/ [Concomitant]
     Dosage: 100 MG, UNK
     Route: 048
  3. ILOPROST [Concomitant]
     Route: 042
  4. MEPRAL                             /00661201/ [Concomitant]
     Dosage: 40 MG, UNK
  5. MEDROL [Concomitant]
     Dosage: 8 MG, QD
     Route: 048
  6. LEVOFLOXACIN [Concomitant]
     Dosage: 500 MG, QD
     Dates: start: 20120504, end: 20120508
  7. MINOCIN [Concomitant]
     Dosage: 100 MG, QD
  8. AMBRISENTAN [Suspect]
     Indication: PULMONARY HYPERTENSION
     Dosage: 5 MG, QD
     Route: 048
     Dates: start: 20120418, end: 20120504
  9. ASPIRIN [Concomitant]
  10. PROCORALAN [Concomitant]
     Dosage: 15 MG, QD
  11. NATECAL D [Concomitant]

REACTIONS (5)
  - OEDEMA PERIPHERAL [None]
  - DYSPNOEA [None]
  - FLUID RETENTION [None]
  - SYSTEMIC SCLEROSIS [None]
  - HEPATOTOXICITY [None]
